FAERS Safety Report 6240573-X (Version None)
Quarter: 2009Q2

REPORT INFORMATION
  Report Type: 
  Country: None (occurrence: None)
  Receive Date: 20090623
  Receipt Date: 20081020
  Transmission Date: 20091009
  Serious: No
  Sender: FDA-Public Use
  Company Number: US-ASTRAZENECA-2008UW21873

PATIENT
  Age: 3 Year
  Sex: Female
  Weight: 15.9 kg

DRUGS (4)
  1. PULMICORT RESPULES [Suspect]
     Indication: BRONCHIOLITIS
     Dosage: .25MG/2ML BID WITH ABUTEROL
     Route: 055
     Dates: start: 20080701
  2. PULMICORT RESPULES [Suspect]
     Indication: BRONCHITIS
     Dosage: .25MG/2ML BID WITH ABUTEROL
     Route: 055
     Dates: start: 20080701
  3. PULMICORT RESPULES [Suspect]
     Route: 055
  4. PULMICORT RESPULES [Suspect]
     Route: 055

REACTIONS (1)
  - NIGHTMARE [None]
